FAERS Safety Report 8606783-9 (Version None)
Quarter: 2012Q3

REPORT INFORMATION
  Report Type: 
  Country: None (occurrence: None)
  Receive Date: 20120820
  Receipt Date: 20120814
  Transmission Date: 20120928
  Serious: Yes (Other)
  Sender: FDA-Public Use
  Company Number: US-ELI_LILLY_AND_COMPANY-US201208004412

PATIENT
  Sex: Male
  Weight: 90.703 kg

DRUGS (5)
  1. BYDUREON [Suspect]
     Indication: TYPE 2 DIABETES MELLITUS
     Dosage: 2 MG, WEEKLY (1/W)
  2. BYETTA [Suspect]
     Indication: TYPE 2 DIABETES MELLITUS
     Dosage: 10 UG, BID
     Route: 058
     Dates: start: 20111001, end: 20120101
  3. LISINOPRIL [Concomitant]
     Indication: CARDIAC DISORDER
     Dosage: 10 MG, QD
     Route: 048
     Dates: start: 20120801
  4. AMARYL [Concomitant]
     Indication: TYPE 2 DIABETES MELLITUS
     Dosage: UNK, QD
     Route: 048
  5. LISINOPRIL [Concomitant]
     Dosage: 20 MG, QD

REACTIONS (6)
  - CARDIAC DISCOMFORT [None]
  - STRESS [None]
  - ABDOMINAL PAIN LOWER [None]
  - HEART RATE IRREGULAR [None]
  - BLOOD GLUCOSE DECREASED [None]
  - ATRIOVENTRICULAR BLOCK FIRST DEGREE [None]
